FAERS Safety Report 20207813 (Version 1)
Quarter: 2021Q4

REPORT INFORMATION
  Report Type: Spontaneous
  Country: US (occurrence: None)
  Receive Date: 20211220
  Receipt Date: 20211220
  Transmission Date: 20220304
  Serious: Yes (Other)
  Sender: FDA-Public Use
  Company Number: None

PATIENT
  Age: 76 Year
  Sex: Male
  Weight: 75.15 kg

DRUGS (1)
  1. IPRATROPIUM BROMIDE [Suspect]
     Active Substance: IPRATROPIUM BROMIDE
     Indication: Sinus disorder
     Dosage: OTHER QUANTITY : 2 SPRAY(S);?FREQUENCY : 3 TIMES A DAY;?OTHER ROUTE : NOSE SPRAY;?
     Route: 050
     Dates: start: 20211203, end: 20211209

REACTIONS (3)
  - Dyspepsia [None]
  - Dyspnoea [None]
  - Vomiting [None]

NARRATIVE: CASE EVENT DATE: 20211209
